FAERS Safety Report 6219045-4 (Version None)
Quarter: 2009Q2

REPORT INFORMATION
  Report Type: 
  Country: None (occurrence: None)
  Receive Date: 20090608
  Receipt Date: 20090527
  Transmission Date: 20091009
  Serious: Yes (Other)
  Sender: FDA-Public Use
  Company Number: US-PFIZER INC-2009220331

PATIENT
  Age: 54 Year
  Sex: Female
  Weight: 60.771 kg

DRUGS (1)
  1. CHANTIX [Suspect]
     Dosage: UNK
     Dates: start: 20070501

REACTIONS (2)
  - BIPOLAR II DISORDER [None]
  - DEPRESSION [None]
